FAERS Safety Report 12911036 (Version 2)
Quarter: 2016Q4

REPORT INFORMATION
  Report Type: Spontaneous
  Country: US (occurrence: US)
  Receive Date: 20161104
  Receipt Date: 20161121
  Transmission Date: 20170207
  Serious: No
  Sender: FDA-Public Use
  Company Number: US-PFIZER INC-2016509847

PATIENT
  Age: 80 Year
  Sex: Female

DRUGS (3)
  1. LETROZOLE. [Suspect]
     Active Substance: LETROZOLE
  2. IBRANCE [Suspect]
     Active Substance: PALBOCICLIB
     Dosage: 125 UNK, UNK
     Dates: start: 20161028
  3. IBRANCE [Suspect]
     Active Substance: PALBOCICLIB
     Dosage: 100 MG, UNK
     Dates: start: 20161028

REACTIONS (7)
  - Cough [Unknown]
  - Insomnia [Unknown]
  - Night sweats [Unknown]
  - Headache [Unknown]
  - Constipation [Unknown]
  - Abdominal pain [Unknown]
  - Amnesia [Unknown]

NARRATIVE: CASE EVENT DATE: 2016
